FAERS Safety Report 5464094-7 (Version None)
Quarter: 2007Q3

REPORT INFORMATION
  Report Type: 
  Country: None (occurrence: None)
  Receive Date: 20070921
  Receipt Date: 20070913
  Transmission Date: 20080115
  Serious: Yes (Other)
  Sender: FDA-Public Use
  Company Number: FR-TYCO HEALTHCARE/MALLINCKRODT-T200700349

PATIENT

DRUGS (1)
  1. HEXABRIX [Suspect]
     Indication: CARDIOVASCULAR EVALUATION
     Dosage: 100 ML, SINGLE
     Dates: start: 20070227, end: 20070227

REACTIONS (3)
  - HYPERSENSITIVITY [None]
  - HYPOTENSION [None]
  - SNEEZING [None]
